FAERS Safety Report 13461993 (Version 3)
Quarter: 2017Q2

REPORT INFORMATION
  Report Type: Spontaneous
  Country: US (occurrence: US)
  Receive Date: 20170420
  Receipt Date: 20170505
  Transmission Date: 20170830
  Serious: No
  Sender: FDA-Public Use
  Company Number: US-GLAXOSMITHKLINE-US2017055716

PATIENT
  Age: 63 Year
  Sex: Female
  Weight: 51.66 kg

DRUGS (3)
  1. LAMOTRIGINE TABLET [Suspect]
     Active Substance: LAMOTRIGINE
     Indication: SEIZURE
     Dosage: 100 MG, UNK
     Dates: start: 2005
  2. LAMICTAL XR [Suspect]
     Active Substance: LAMOTRIGINE
     Indication: PRODUCT USED FOR UNKNOWN INDICATION
     Dosage: 150 MG, U
  3. LAMICTAL [Suspect]
     Active Substance: LAMOTRIGINE
     Indication: SEIZURE
     Dosage: 100 MG, UNK
     Dates: start: 2005

REACTIONS (4)
  - Feeling abnormal [Unknown]
  - Adverse drug reaction [Unknown]
  - Alopecia [Unknown]
  - Emotional distress [Unknown]

NARRATIVE: CASE EVENT DATE: 201702
